FAERS Safety Report 8117833 (Version 2)
Quarter: 2012Q4

REPORT INFORMATION
  Report Type: 
  Country: US (occurrence: US)
  Receive Date: 20110901
  Receipt Date: 20121015
  Transmission Date: 20130627
  Serious: Yes (Other)
  Sender: FDA-Public Use
  Company Number: US-US-EMD SERONO, INC.-7079089

PATIENT
  Age: 52 None
  Sex: Female

DRUGS (1)
  1. REBIF [Suspect]
     Indication: PRODUCT USED FOR UNKNOWN INDICATION
     Route: 058
     Dates: start: 20070803

REACTIONS (4)
  - Upper limb fracture [Recovered/Resolved]
  - Rotator cuff syndrome [Recovered/Resolved]
  - Fall [Unknown]
  - Injection site bruising [Not Recovered/Not Resolved]
